FAERS Safety Report 18586224 (Version 5)
Quarter: 2021Q2

REPORT INFORMATION
  Report Type: Spontaneous
  Country: US (occurrence: US)
  Receive Date: 20201207
  Receipt Date: 20210629
  Transmission Date: 20210717
  Serious: No
  Sender: FDA-Public Use
  Company Number: US-PFIZER INC-2019157614

PATIENT
  Age: 88 Year
  Sex: Female
  Weight: 80.74 kg

DRUGS (7)
  1. LYRICA [Suspect]
     Active Substance: PREGABALIN
     Indication: IMMUNOSUPPRESSANT DRUG THERAPY
  2. LYRICA [Suspect]
     Active Substance: PREGABALIN
     Indication: IMMUNODEFICIENCY COMMON VARIABLE
  3. LYRICA [Suspect]
     Active Substance: PREGABALIN
     Indication: ARTHRITIS
     Dosage: 75 MG, DAILY [ONE IN THE MORNING AND TWO AT NIGHT]
     Route: 048
  4. LYRICA [Suspect]
     Active Substance: PREGABALIN
     Indication: FIBROMYALGIA
  5. LYRICA [Suspect]
     Active Substance: PREGABALIN
     Indication: OSTEOPENIA
  6. LYRICA [Suspect]
     Active Substance: PREGABALIN
     Indication: RHEUMATOID ARTHRITIS
  7. LYRICA [Suspect]
     Active Substance: PREGABALIN
     Indication: NEUROPATHY PERIPHERAL

REACTIONS (2)
  - Holmes-Adie pupil [Unknown]
  - Hypoacusis [Unknown]
